FAERS Safety Report 13951179 (Version 6)
Quarter: 2018Q4

REPORT INFORMATION
  Report Type: Spontaneous
  Country: US (occurrence: US)
  Receive Date: 20170908
  Receipt Date: 20181002
  Transmission Date: 20190204
  Serious: Yes (Other)
  Sender: FDA-Public Use
  Company Number: US-JAZZ-2017-US-009186

PATIENT
  Sex: Female
  Weight: 93.88 kg

DRUGS (20)
  1. ZINC. [Concomitant]
     Active Substance: ZINC
  2. ZOLPIDEM TARTRATE. [Concomitant]
     Active Substance: ZOLPIDEM TARTRATE
  3. Q10 [Concomitant]
  4. MAGNESIUM [Concomitant]
     Active Substance: MAGNESIUM
  5. ORAZINC [Concomitant]
  6. DOXYCYCLINE HYCLATE. [Concomitant]
     Active Substance: DOXYCYCLINE HYCLATE
  7. ORACEA [Concomitant]
     Active Substance: DOXYCYCLINE
  8. ORTHO CYCLEN [Concomitant]
     Active Substance: ETHINYL ESTRADIOL\NORGESTIMATE
  9. DEXAMFETAMINE [Concomitant]
     Active Substance: DEXTROAMPHETAMINE
  10. ZYRTEC [Concomitant]
     Active Substance: CETIRIZINE HYDROCHLORIDE
  11. FOLIC ACID. [Concomitant]
     Active Substance: FOLIC ACID
  12. CEFALEXIN [Concomitant]
     Active Substance: CEPHALEXIN
  13. ASCORBIC ACID. [Concomitant]
     Active Substance: ASCORBIC ACID
  14. FLUOXETINE HCL [Concomitant]
     Active Substance: FLUOXETINE HYDROCHLORIDE
  15. XYREM [Suspect]
     Active Substance: SODIUM OXYBATE
     Indication: NARCOLEPSY
     Dosage: 3G, BID
     Route: 048
     Dates: start: 201201, end: 201204
  16. MINOCYCLINE [Concomitant]
     Active Substance: MINOCYCLINE\MINOCYCLINE HYDROCHLORIDE
  17. XYREM [Suspect]
     Active Substance: SODIUM OXYBATE
     Indication: CATAPLEXY
     Dosage: 4G, BID
     Route: 048
     Dates: start: 201204, end: 2017
  18. ACZONE [Concomitant]
     Active Substance: DAPSONE
  19. NEUAC [Concomitant]
     Active Substance: BENZOYL PEROXIDE\CLINDAMYCIN PHOSPHATE
  20. MONONESSA [Concomitant]
     Active Substance: ETHINYL ESTRADIOL\NORGESTIMATE

REACTIONS (5)
  - Premature delivery [Unknown]
  - Exposure during pregnancy [Unknown]
  - Ovarian cyst [Unknown]
  - Dizziness [Not Recovered/Not Resolved]
  - Dyspepsia [Unknown]
